FAERS Safety Report 14239704 (Version 3)
Quarter: 2017Q4

REPORT INFORMATION
  Report Type: Report from Study
  Country: CA (occurrence: CA)
  Receive Date: 20171130
  Receipt Date: 20171220
  Transmission Date: 20180321
  Serious: Yes (Other)
  Sender: FDA-Public Use
  Company Number: CA-GLAXOSMITHKLINE-CA2017GSK182015

PATIENT
  Sex: Female

DRUGS (1)
  1. SALBUTAMOL SULPHATE [Suspect]
     Active Substance: ALBUTEROL SULFATE
     Indication: PRODUCT USED FOR UNKNOWN INDICATION
     Dosage: 200 MG, PRN

REACTIONS (15)
  - Cardiovascular disorder [Unknown]
  - Pneumothorax [Unknown]
  - Scar [Unknown]
  - Muscle spasms [Unknown]
  - Hypersensitivity [Unknown]
  - Lower respiratory tract infection [Unknown]
  - Muscular weakness [Unknown]
  - Nasopharyngitis [Unknown]
  - Sinusitis [Unknown]
  - Nasal congestion [Unknown]
  - Thrombosis [Unknown]
  - Upper respiratory tract infection [Unknown]
  - Peripheral swelling [Unknown]
  - Bacterial infection [Unknown]
  - Vitamin B12 decreased [Unknown]
